FAERS Safety Report 8302040-9 (Version None)
Quarter: 2012Q2

REPORT INFORMATION
  Report Type: 
  Country: None (occurrence: None)
  Receive Date: 20120420
  Receipt Date: 20120411
  Transmission Date: 20120825
  Serious: Yes (Other)
  Sender: FDA-Public Use
  Company Number: US-MERCK-1204USA01865

PATIENT
  Age: 70 Year
  Sex: Female
  Weight: 55 kg

DRUGS (2)
  1. ACTONEL [Suspect]
     Indication: OSTEOPOROSIS
     Route: 065
  2. FOSAMAX [Suspect]
     Indication: OSTEOPOROSIS
     Route: 048

REACTIONS (19)
  - ADVERSE EVENT [None]
  - MASTOID DISORDER [None]
  - EAR DISORDER [None]
  - LOCALISED INFECTION [None]
  - ADENOIDAL DISORDER [None]
  - TOOTH DEPOSIT [None]
  - SJOGREN'S SYNDROME [None]
  - SINUS DISORDER [None]
  - HAEMORRHAGIC DISORDER [None]
  - TOOTH DISORDER [None]
  - HIP FRACTURE [None]
  - TOOTH FRACTURE [None]
  - ADVERSE DRUG REACTION [None]
  - ORAL PAIN [None]
  - ARTHRITIS [None]
  - APHTHOUS STOMATITIS [None]
  - DENTAL CARIES [None]
  - TOOTH INFECTION [None]
  - GLUCOSE TOLERANCE IMPAIRED [None]
